FAERS Safety Report 18979817 (Version 1)
Quarter: 2021Q1

REPORT INFORMATION
  Report Type: Report from Study
  Country: FR (occurrence: FR)
  Receive Date: 20210308
  Receipt Date: 20210308
  Transmission Date: 20210420
  Serious: Yes (Other)
  Sender: FDA-Public Use
  Company Number: FR-JNJFOC-20210302323

PATIENT

DRUGS (6)
  1. SERTRALINE [Concomitant]
     Active Substance: SERTRALINE HYDROCHLORIDE
     Indication: ANTIDEPRESSANT THERAPY
     Route: 048
     Dates: start: 20190502
  2. QUETIAPINE. [Concomitant]
     Active Substance: QUETIAPINE
     Indication: POTENTIATING DRUG INTERACTION
     Dates: start: 20201015
  3. SPRAVATO [Suspect]
     Active Substance: ESKETAMINE
     Dates: start: 20201222, end: 20210202
  4. LORAZEPAM. [Concomitant]
     Active Substance: LORAZEPAM
     Indication: ANXIETY
     Dates: start: 20201104
  5. SPRAVATO [Suspect]
     Active Substance: ESKETAMINE
     Indication: DEPRESSION
     Dates: start: 20201201, end: 20201218
  6. HYDROXYZINE [Concomitant]
     Active Substance: HYDROXYZINE HYDROCHLORIDE
     Indication: SEDATIVE THERAPY
     Dates: start: 20181123

REACTIONS (1)
  - Drug dependence [Unknown]
